FAERS Safety Report 26017366 (Version 1)
Quarter: 2025Q4

REPORT INFORMATION
  Report Type: Spontaneous
  Country: EU (occurrence: EU)
  Receive Date: 20251110
  Receipt Date: 20251110
  Transmission Date: 20260118
  Serious: Yes (Other)
  Sender: CHEPLAPHARM
  Company Number: None

PATIENT
  Age: 39 Year
  Sex: Female

DRUGS (15)
  1. BROMAZEPAM [Suspect]
     Active Substance: BROMAZEPAM
     Indication: Sedation
     Dosage: 7 TABLETS/WEEK
     Route: 048
     Dates: start: 2025
  2. QUETIAPINE [Suspect]
     Active Substance: QUETIAPINE
     Indication: Sedation
     Dosage: } - 3 TABLETS/24 HOURS; ONE EPISODE DESCRIBED AS 2 TABLETS IN THE EVENING THEN 1 TABLET AT 6 A.M.
     Route: 048
     Dates: start: 2018
  3. QUETIAPINE [Suspect]
     Active Substance: QUETIAPINE
     Indication: Anxiolytic therapy
     Dosage: } - 3 TABLETS/24 HOURS; ONE EPISODE DESCRIBED AS 2 TABLETS IN THE EVENING THEN 1 TABLET AT 6 A.M.
     Route: 048
     Dates: start: 2018
  4. OLANZAPINE [Suspect]
     Active Substance: OLANZAPINE
     Indication: Sedation
  5. COCAINE [Suspect]
     Active Substance: COCAINE
     Indication: Sedation
     Dosage: UP TO 3 G/DAY; BY SMOKING; USED FOR 2-3 WEEKS?DAILY DOSE: 3 GRAM
     Route: 055
     Dates: start: 2017
  6. COCAINE [Suspect]
     Active Substance: COCAINE
     Indication: Euphoric mood
     Dosage: UP TO 3 G/DAY; BY SMOKING; USED FOR 2-3 WEEKS?DAILY DOSE: 3 GRAM
     Route: 055
     Dates: start: 2017
  7. COCAINE [Suspect]
     Active Substance: COCAINE
     Indication: Communication disorder
     Dosage: UP TO 3 G/DAY; BY SMOKING; USED FOR 2-3 WEEKS?DAILY DOSE: 3 GRAM
     Route: 055
     Dates: start: 2017
  8. CANNABIS SATIVA SUBSP. INDICA TOP [Suspect]
     Active Substance: CANNABIS SATIVA SUBSP. INDICA TOP
     Indication: Amnesia
     Dosage: 10 G/MONTH; STARTED AROUND AGE 18?20; USED FOR 2-3 WEEKS
     Route: 055
     Dates: start: 2004
  9. CANNABIS SATIVA SUBSP. INDICA TOP [Suspect]
     Active Substance: CANNABIS SATIVA SUBSP. INDICA TOP
     Indication: Affective disorder
     Dosage: 10 G/MONTH; STARTED AROUND AGE 18?20; USED FOR 2-3 WEEKS
     Route: 055
     Dates: start: 2004
  10. CANNABIS SATIVA SUBSP. INDICA TOP [Suspect]
     Active Substance: CANNABIS SATIVA SUBSP. INDICA TOP
     Indication: Sedation
     Dosage: 10 G/MONTH; STARTED AROUND AGE 18?20; USED FOR 2-3 WEEKS
     Route: 055
     Dates: start: 2004
  11. CANNABIS SATIVA SUBSP. INDICA TOP [Suspect]
     Active Substance: CANNABIS SATIVA SUBSP. INDICA TOP
     Indication: Discomfort
     Dosage: 10 G/MONTH; STARTED AROUND AGE 18?20; USED FOR 2-3 WEEKS
     Route: 055
     Dates: start: 2004
  12. VENLAFAXINE [Suspect]
     Active Substance: VENLAFAXINE HYDROCHLORIDE
     Indication: Sedation
  13. KETAMINE [Suspect]
     Active Substance: KETAMINE
     Indication: Euphoric mood
     Dates: start: 2018
  14. KETAMINE [Suspect]
     Active Substance: KETAMINE
     Indication: Sedation
     Dates: start: 2018
  15. ALCOHOL [Suspect]
     Active Substance: ALCOHOL
     Indication: Sedation
     Dosage: UP TO 2 BOTTLES OF WINE PER DAY; CONSUMES WHEN NO OTHER SUBSTANCES ARE AVAILABLE
     Route: 048
     Dates: start: 2023

REACTIONS (4)
  - Drug use disorder [Not Recovered/Not Resolved]
  - Drug abuse [Unknown]
  - Overdose [Unknown]
  - Off label use [Recovered/Resolved]
